FAERS Safety Report 9399288 (Version 1)
Quarter: 2013Q3

REPORT INFORMATION
  Report Type: Spontaneous
  Country: US (occurrence: US)
  Receive Date: 20130715
  Receipt Date: 20130715
  Transmission Date: 20140515
  Serious: Yes (Other)
  Sender: FDA-Public Use
  Company Number: US-PFIZER INC-2013204273

PATIENT
  Age: 57 Year
  Sex: Male
  Weight: 68.48 kg

DRUGS (1)
  1. LIPITOR [Suspect]
     Indication: HYPERCHOLESTEROLAEMIA
     Dosage: UNK, DAILY
     Route: 048
     Dates: start: 1998, end: 2000

REACTIONS (2)
  - Muscular weakness [Recovered/Resolved]
  - Drug hypersensitivity [Unknown]
